FAERS Safety Report 15402187 (Version 1)
Quarter: 2018Q3

REPORT INFORMATION
  Report Type: Spontaneous
  Country: ZA (occurrence: ZA)
  Receive Date: 20180919
  Receipt Date: 20180919
  Transmission Date: 20181010
  Serious: Yes (Other)
  Sender: FDA-Public Use
  Company Number: ZA-PFIZER INC-2018375864

PATIENT
  Age: 76 Year
  Sex: Male

DRUGS (11)
  1. LYRICA [Suspect]
     Active Substance: PREGABALIN
     Dosage: 25 MG, UNK
  2. CLOPIWIN [Suspect]
     Active Substance: CLOPIDOGREL BISULFATE
     Dosage: 75 MG, UNK
  3. CIPLAVASC [Suspect]
     Active Substance: AMLODIPINE BESYLATE
     Dosage: 10 MG, UNK
  4. CILIFT [Suspect]
     Active Substance: CITALOPRAM HYDROBROMIDE
     Dosage: 20 MG, UNK
  5. TOPRAFLUX [Suspect]
     Active Substance: PANTOPRAZOLE SODIUM
     Dosage: 40 MG, UNK
  6. ECOTRIN [Suspect]
     Active Substance: ASPIRIN
     Dosage: 81 MG, UNK
  7. EPIKEPP [Suspect]
     Active Substance: LEVETIRACETAM
     Dosage: 500 MG, UNK
  8. CARDICOR [Suspect]
     Active Substance: BISOPROLOL
     Dosage: 2.5 MG, UNK
  9. ONE ALPHA [Suspect]
     Active Substance: ALFACALCIDOL
     Dosage: 0.25 MG, UNK
  10. ASPAVOR [Suspect]
     Active Substance: ATORVASTATIN
     Dosage: 40 MG, UNK
  11. EPILIZINE CR [Suspect]
     Active Substance: VALPROATE SODIUM
     Dosage: 500 MG, UNK

REACTIONS (1)
  - Renal failure [Unknown]
